FAERS Safety Report 20224340 (Version 1)
Quarter: 2021Q4

REPORT INFORMATION
  Report Type: Spontaneous
  Country: NL (occurrence: NL)
  Receive Date: 20211223
  Receipt Date: 20211223
  Transmission Date: 20220303
  Serious: Yes (Hospitalization)
  Sender: FDA-Public Use
  Company Number: None

PATIENT
  Age: 63 Year
  Sex: Female
  Weight: 78 kg

DRUGS (1)
  1. OLUMIANT [Suspect]
     Active Substance: BARICITINIB
     Indication: Rheumatoid arthritis
     Dosage: 4 MG, DAILY, ONE PER DAY
     Route: 065
     Dates: start: 20190101, end: 20211210

REACTIONS (2)
  - Constipation [Recovering/Resolving]
  - Diverticulitis [Recovering/Resolving]

NARRATIVE: CASE EVENT DATE: 20211126
